FAERS Safety Report 5799448-2 (Version None)
Quarter: 2008Q3

REPORT INFORMATION
  Report Type: 
  Country: None (occurrence: None)
  Receive Date: 20080702
  Receipt Date: 20080702
  Transmission Date: 20090109
  Serious: Yes (Hospitalization)
  Sender: FDA-Public Use
  Company Number: None

PATIENT
  Sex: Male
  Weight: 138 kg

DRUGS (1)
  1. CETUXIMAB [Suspect]
     Dosage: 1040 MG

REACTIONS (4)
  - ANAPHYLACTIC REACTION [None]
  - DYSPNOEA [None]
  - INFUSION RELATED REACTION [None]
  - TACHYCARDIA [None]
